FAERS Safety Report 6289233-X (Version None)
Quarter: 2009Q3

REPORT INFORMATION
  Report Type: 
  Country: None (occurrence: None)
  Receive Date: 20090729
  Receipt Date: 20090729
  Transmission Date: 20100115
  Serious: Yes (Other)
  Sender: FDA-Public Use
  Company Number: None

PATIENT
  Age: 20 Year
  Sex: Female

DRUGS (1)
  1. PLAN B [Suspect]
     Indication: CONTRACEPTION
     Dosage: FIRST PILL AFTER UNPROTECTED PO; SECOND PILL 12 HOURS LATER PO
     Route: 048
     Dates: start: 20090710, end: 20090711

REACTIONS (8)
  - ABDOMINAL PAIN [None]
  - BACK PAIN [None]
  - DIZZINESS [None]
  - FATIGUE [None]
  - HEADACHE [None]
  - NAUSEA [None]
  - OROPHARYNGEAL PAIN [None]
  - URINARY TRACT PAIN [None]
